FAERS Safety Report 8227450-X (Version None)
Quarter: 2012Q1

REPORT INFORMATION
  Report Type: 
  Country: None (occurrence: None)
  Receive Date: 20120322
  Receipt Date: 20120314
  Transmission Date: 20120608
  Serious: Yes (Other)
  Sender: FDA-Public Use
  Company Number: US-BAYER-2011-050885

PATIENT
  Age: 38 Year
  Sex: Female
  Weight: 74.83 kg

DRUGS (4)
  1. CLARITIN [Concomitant]
     Dosage: 10 MG, QD
     Dates: start: 20090329
  2. PREVACID [Concomitant]
     Dosage: 30, UNK, QD
     Dates: start: 20090329
  3. ADVAIR DISKUS 100/50 [Concomitant]
     Dosage: UNK
     Dates: start: 20090329
  4. YAZ [Suspect]
     Indication: CONTRACEPTION
     Dosage: UNK
     Dates: start: 20070701, end: 20091001

REACTIONS (11)
  - DYSPEPSIA [None]
  - PAIN [None]
  - FLATULENCE [None]
  - ANXIETY [None]
  - DEPRESSION [None]
  - GALLBLADDER DISORDER [None]
  - CHOLECYSTITIS [None]
  - ABDOMINAL DISTENSION [None]
  - SCAR [None]
  - DIARRHOEA [None]
  - CONSTIPATION [None]
